FAERS Safety Report 25230717 (Version 3)
Quarter: 2025Q3

REPORT INFORMATION
  Report Type: Spontaneous
  Country: US (occurrence: US)
  Receive Date: 20250423
  Receipt Date: 20250714
  Transmission Date: 20251020
  Serious: No
  Sender: SANOFI AVENTIS
  Company Number: US-SA-2025SA114368

PATIENT
  Age: 25 Year
  Sex: Female

DRUGS (3)
  1. DUPIXENT [Suspect]
     Active Substance: DUPILUMAB
     Indication: Eczema
     Route: 058
     Dates: start: 20250227, end: 20250227
  2. DUPIXENT [Suspect]
     Active Substance: DUPILUMAB
     Indication: Asthma
     Dosage: 300 MG, QOW
     Route: 058
     Dates: start: 202503, end: 2025
  3. DUPIXENT [Suspect]
     Active Substance: DUPILUMAB
     Indication: Dermatitis atopic

REACTIONS (8)
  - Joint stiffness [Unknown]
  - Movement disorder [Unknown]
  - Sleep disorder due to a general medical condition [Unknown]
  - Musculoskeletal discomfort [Unknown]
  - Condition aggravated [Unknown]
  - Balance disorder [Unknown]
  - Condition aggravated [Unknown]
  - Ataxia [Unknown]

NARRATIVE: CASE EVENT DATE: 20250101
